FAERS Safety Report 7094871-0 (Version None)
Quarter: 2010Q4

REPORT INFORMATION
  Report Type: 
  Country: None (occurrence: None)
  Receive Date: 20101111
  Receipt Date: 20101102
  Transmission Date: 20110411
  Serious: Yes (Hospitalization)
  Sender: FDA-Public Use
  Company Number: 2005BI002561

PATIENT
  Age: 29 Year
  Sex: Male
  Weight: 127 kg

DRUGS (9)
  1. AVONEX [Suspect]
     Indication: MULTIPLE SCLEROSIS
     Route: 030
     Dates: start: 20020911, end: 20030101
  2. AVONEX [Suspect]
     Route: 030
     Dates: start: 20030101, end: 20050301
  3. AVONEX [Suspect]
     Route: 030
     Dates: start: 20050301, end: 20050914
  4. REBIF [Concomitant]
     Indication: MULTIPLE SCLEROSIS
     Route: 030
     Dates: start: 20050101, end: 20080101
  5. IMMUNE GLOBULIN INTRAVENOUS (HUMAN) [Concomitant]
     Route: 042
  6. METHADONE HCL [Concomitant]
     Indication: MYALGIA
     Dates: start: 20000801
  7. NUCYNTA [Concomitant]
     Indication: MYALGIA
     Dates: start: 20000801
  8. LYRICA [Concomitant]
     Indication: MYALGIA
     Dates: start: 20000801
  9. CYMBALTA [Concomitant]
     Indication: MYALGIA
     Dates: start: 20000801

REACTIONS (7)
  - COLITIS [None]
  - DECREASED APPETITE [None]
  - GASTROINTESTINAL HYPERMOTILITY [None]
  - MULTIPLE SCLEROSIS RELAPSE [None]
  - MYALGIA [None]
  - PAIN IN EXTREMITY [None]
  - PULMONARY EMBOLISM [None]
